FAERS Safety Report 9251122 (Version 1)
Quarter: 2013Q2

REPORT INFORMATION
  Report Type: Spontaneous
  Country: IT (occurrence: IT)
  Receive Date: 20130424
  Receipt Date: 20130424
  Transmission Date: 20140414
  Serious: Yes (Death, Other)
  Sender: FDA-Public Use
  Company Number: IT-CELGENEUS-083-21880-13042529

PATIENT
  Sex: 0

DRUGS (3)
  1. REVLIMID [Suspect]
     Indication: PLASMA CELL MYELOMA
     Route: 048
  2. THALIDOMIDE [Concomitant]
     Indication: PLASMA CELL MYELOMA
     Route: 065
  3. STEROIDS [Concomitant]
     Indication: PRODUCT USED FOR UNKNOWN INDICATION
     Route: 065

REACTIONS (7)
  - Polymyositis [Fatal]
  - Autoimmune thrombocytopenia [Unknown]
  - Thyroiditis acute [Unknown]
  - Optic neuritis [Unknown]
  - Haemolytic anaemia [Unknown]
  - Parapsoriasis [Unknown]
  - Erythema multiforme [Unknown]
